FAERS Safety Report 7177087-9 (Version None)
Quarter: 2010Q4

REPORT INFORMATION
  Report Type: 
  Country: None (occurrence: None)
  Receive Date: 20101207
  Receipt Date: 20101122
  Transmission Date: 20110411
  Serious: Yes (Other)
  Sender: FDA-Public Use
  Company Number: 2010-4064

PATIENT
  Age: 44 Year
  Sex: Male
  Weight: 65 kg

DRUGS (3)
  1. DYSPORT [Suspect]
     Indication: NECK PAIN
     Dosage: 225 UNITS (225 UNITS, SINGLE CYCLE), INTRAMUSCULAR
     Route: 030
     Dates: start: 20100614, end: 20100614
  2. NSAID [Concomitant]
  3. TEMAZEPAM [Concomitant]

REACTIONS (1)
  - NEURALGIC AMYOTROPHY [None]
